FAERS Safety Report 25396264 (Version 1)
Quarter: 2025Q2

REPORT INFORMATION
  Report Type: Spontaneous
  Country: US (occurrence: US)
  Receive Date: 20250604
  Receipt Date: 20250604
  Transmission Date: 20250716
  Serious: No
  Sender: PFIZER
  Company Number: US-PFIZER INC-202500114344

PATIENT
  Age: 34 Year
  Sex: Female

DRUGS (1)
  1. NURTEC ODT [Suspect]
     Active Substance: RIMEGEPANT SULFATE
     Indication: Prophylaxis
     Dosage: 75 MG, EVERY OTHER DAY
     Dates: start: 20250505

REACTIONS (1)
  - Raynaud^s phenomenon [Unknown]

NARRATIVE: CASE EVENT DATE: 20250601
